FAERS Safety Report 9086933 (Version 1)
Quarter: 2013Q1

REPORT INFORMATION
  Report Type: Report from Study
  Country: CA (occurrence: CA)
  Receive Date: 20130217
  Receipt Date: 20130217
  Transmission Date: 20140127
  Serious: Yes (Hospitalization, Other)
  Sender: FDA-Public Use
  Company Number: CA-JNJFOC-20130205353

PATIENT
  Age: 57 Year
  Sex: Male
  Weight: 72.12 kg

DRUGS (9)
  1. REMICADE [Suspect]
     Indication: COLITIS ULCERATIVE
     Route: 042
     Dates: start: 20120612
  2. ASACOL [Concomitant]
     Route: 065
  3. FERROUS FUMERATE [Concomitant]
     Dosage: ^111 TABS^
     Route: 065
  4. SYMBICORT [Concomitant]
     Dosage: AT A.M. (MORNING) AND H.S. (HOUR OF SLEEP)
     Route: 065
  5. SALMON OIL [Concomitant]
     Route: 065
  6. MULTIVITAMINS [Concomitant]
     Route: 065
  7. PREDNISONE [Concomitant]
     Route: 065
  8. ROSUVASTATIN [Concomitant]
     Route: 065
  9. BABY ASPIRIN [Concomitant]
     Route: 065

REACTIONS (2)
  - Myocardial infarction [Recovered/Resolved]
  - Anal abscess [Not Recovered/Not Resolved]
